FAERS Safety Report 18327713 (Version 1)
Quarter: 2020Q3

REPORT INFORMATION
  Report Type: Spontaneous
  Country: ES (occurrence: ES)
  Receive Date: 20200929
  Receipt Date: 20200929
  Transmission Date: 20201103
  Serious: Yes (Life-Threatening, Hospitalization, Other)
  Sender: FDA-Public Use
  Company Number: ES-JNJFOC-20200941372

PATIENT
  Age: 83 Year
  Sex: Female

DRUGS (5)
  1. FUROSEMIDA [FUROSEMIDE] [Interacting]
     Active Substance: FUROSEMIDE
     Indication: CARDIOMYOPATHY
     Dosage: 40 MILLIGRAM, 1/DAY
     Route: 048
     Dates: start: 20090709, end: 20160704
  2. TRAMADOL HYDROCHLORIDE. [Suspect]
     Active Substance: TRAMADOL HYDROCHLORIDE
     Indication: PAIN
     Dosage: UNK UNK, 1/DAY
     Route: 048
     Dates: start: 20130528, end: 20160704
  3. ESPIRONOLACTONA [Interacting]
     Active Substance: SPIRONOLACTONE
     Indication: CARDIOMYOPATHY
     Dosage: 25 MILLIGRAM, 1/DAY
     Route: 048
     Dates: start: 20120227, end: 20160704
  4. LISINOPRIL. [Concomitant]
     Active Substance: LISINOPRIL
     Indication: HYPERTENSION
     Dosage: 20 MILLIGRAM, 1/DAY
     Route: 048
     Dates: start: 201109
  5. ACLIDINII BROMIDUM [Concomitant]
     Indication: CHRONIC OBSTRUCTIVE PULMONARY DISEASE
     Dosage: UNK
     Route: 048
     Dates: start: 20140108

REACTIONS (2)
  - Drug interaction [Unknown]
  - Inappropriate antidiuretic hormone secretion [Recovered/Resolved]

NARRATIVE: CASE EVENT DATE: 20160704
